FAERS Safety Report 4849664-9 (Version None)
Quarter: 2005Q4

REPORT INFORMATION
  Report Type: 
  Country: None (occurrence: None)
  Receive Date: 20051207
  Receipt Date: 20051122
  Transmission Date: 20060501
  Serious: Yes (Death, Hospitalization)
  Sender: FDA-Public Use
  Company Number: PAR_0419_2005

PATIENT
  Age: 57 Year
  Sex: Female
  Weight: 56 kg

DRUGS (1)
  1. IMIPRAMINE [Suspect]
     Dosage: DF PO
     Route: 048

REACTIONS (5)
  - CARDIO-RESPIRATORY ARREST [None]
  - COMA [None]
  - DRUG ABUSER [None]
  - OVERDOSE [None]
  - THERAPEUTIC AGENT TOXICITY [None]
